FAERS Safety Report 4662410-7 (Version None)
Quarter: 2005Q2

REPORT INFORMATION
  Report Type: 
  Country: None (occurrence: None)
  Receive Date: 20050512
  Receipt Date: 20050429
  Transmission Date: 20051028
  Serious: Yes (Death, Hospitalization, Other)
  Sender: FDA-Public Use
  Company Number: 2005066449

PATIENT
  Age: 53 Year
  Sex: Male
  Weight: 75 kg

DRUGS (5)
  1. FELDENE [Suspect]
     Indication: ILL-DEFINED DISORDER
     Dosage: 2 DOSES FORM (1 IN 1 D), ORAL
     Route: 048
     Dates: start: 19940926, end: 19940928
  2. KETOPROFEN [Suspect]
     Indication: ILL-DEFINED DISORDER
     Dosage: 2 DOSES FORM (1 IN 1 D), ORAL
     Route: 048
     Dates: start: 19911014, end: 19911015
  3. APOREX (DEXTROPROPOXYPHEN HYDROCHLORIDE, PARACETAMOL) [Suspect]
     Indication: ILL-DEFINED DISORDER
     Dosage: ORAL
     Route: 048
     Dates: start: 19940926, end: 19940928
  4. CHLORMEZANONE (CHLORMEZANONE) [Suspect]
     Indication: ILL-DEFINED DISORDER
     Dosage: ORAL
     Route: 048
     Dates: start: 19880301, end: 19940928
  5. DI-GESIC (DEXTROPROPOXYPHENE, PARACETAMOL) [Suspect]
     Indication: ILL-DEFINED DISORDER

REACTIONS (6)
  - BALANITIS [None]
  - DYSPAREUNIA [None]
  - METASTASES TO BONE [None]
  - PENILE ULCERATION [None]
  - PENIS CARCINOMA [None]
  - PHIMOSIS [None]
